FAERS Safety Report 24581535 (Version 1)
Quarter: 2024Q4

REPORT INFORMATION
  Report Type: Spontaneous
  Country: US (occurrence: US)
  Receive Date: 20241105
  Receipt Date: 20241105
  Transmission Date: 20250115
  Serious: No
  Sender: ABBVIE
  Company Number: US-ABBVIE-5983127

PATIENT
  Sex: Female

DRUGS (1)
  1. RISANKIZUMAB [Suspect]
     Active Substance: RISANKIZUMAB
     Indication: Product used for unknown indication
     Dosage: LAST ADMIN DATE WAS IN 2024
     Route: 042
     Dates: start: 20240731

REACTIONS (4)
  - Mouth ulceration [Recovered/Resolved]
  - Serum sickness [Recovered/Resolved]
  - Pyrexia [Recovered/Resolved]
  - Gingival swelling [Recovered/Resolved]

NARRATIVE: CASE EVENT DATE: 20240814
